FAERS Safety Report 4979647-X (Version None)
Quarter: 2006Q1

REPORT INFORMATION
  Report Type: 
  Country: None (occurrence: None)
  Receive Date: 20060227
  Receipt Date: 20050614
  Transmission Date: 20060701
  Serious: Yes (Other)
  Sender: FDA-Public Use
  Company Number: DSA_26641_2005

PATIENT
  Sex: Female

DRUGS (1)
  1. VASOTEC [Suspect]
     Indication: HYPERTENSION
     Dosage: 10 MG Q DAY PO
     Route: 048
     Dates: start: 20050608, end: 20050608

REACTIONS (1)
  - THROAT TIGHTNESS [None]
